FAERS Safety Report 8008481-1 (Version None)
Quarter: 2011Q4

REPORT INFORMATION
  Report Type: 
  Country: None (occurrence: None)
  Receive Date: 20111221
  Receipt Date: 20111209
  Transmission Date: 20120403
  Serious: Yes (Other)
  Sender: FDA-Public Use
  Company Number: 1000026351

PATIENT
  Sex: Female

DRUGS (2)
  1. ESCITALOPRAM OXALATE [Suspect]
     Indication: PANIC ATTACK
  2. CITALOPRAM HYDROBROMIDE [Suspect]
     Indication: PANIC ATTACK
     Dosage: 75 NG (75 MG 1 IN 1 D), ORAL
     Route: 048

REACTIONS (9)
  - PANIC ATTACK [None]
  - SWOLLEN TONGUE [None]
  - FATIGUE [None]
  - PRODUCT SUBSTITUTION ISSUE [None]
  - OVERDOSE [None]
  - WEIGHT INCREASED [None]
  - DIZZINESS [None]
  - DISEASE RECURRENCE [None]
  - DYSPNOEA [None]
